FAERS Safety Report 7446919-9 (Version None)
Quarter: 2011Q2

REPORT INFORMATION
  Report Type: 
  Country: None (occurrence: None)
  Receive Date: 20110429
  Receipt Date: 20101029
  Transmission Date: 20111010
  Serious: No
  Sender: FDA-Public Use
  Company Number: US-ASTRAZENECA-2010SE51708

PATIENT
  Age: 82 Year
  Sex: Female
  Weight: 95.3 kg

DRUGS (3)
  1. LOTRIL [Concomitant]
  2. SYNTHROID [Concomitant]
  3. NEXIUM [Suspect]
     Route: 048
     Dates: start: 20040101

REACTIONS (1)
  - DYSPHONIA [None]
